FAERS Safety Report 6993139-8 (Version None)
Quarter: 2010Q3

REPORT INFORMATION
  Report Type: 
  Country: None (occurrence: None)
  Receive Date: 20100917
  Receipt Date: 20100910
  Transmission Date: 20110219
  Serious: Yes (Other)
  Sender: FDA-Public Use
  Company Number: US-PFIZER INC-2010114860

PATIENT
  Sex: Male
  Weight: 90.703 kg

DRUGS (7)
  1. CHANTIX [Suspect]
     Indication: TOBACCO USER
     Dosage: 0.5 MG, 1X/DAY
     Route: 048
     Dates: start: 20100801, end: 20100101
  2. CHANTIX [Suspect]
     Dosage: 1 MG, 2X/DAY
     Route: 048
     Dates: start: 20100101
  3. LUVOX [Concomitant]
     Indication: SCHIZOID PERSONALITY DISORDER
     Dosage: 100 MG DAILY, FOR 12 YEARS
  4. RISPERIDONE [Concomitant]
     Indication: SCHIZOID PERSONALITY DISORDER
     Dosage: 2 MG DAILY, FOR 12 YEARS
  5. BENAZEPRIL [Concomitant]
     Indication: HYPERTENSION
     Dosage: 10 MG, DAILY
  6. MONTELUKAST SODIUM [Concomitant]
     Indication: SINUSITIS
     Dosage: 10 MG, DAILY
  7. MONTELUKAST SODIUM [Concomitant]
     Indication: MULTIPLE ALLERGIES

REACTIONS (5)
  - ANGER [None]
  - ENERGY INCREASED [None]
  - PSYCHOTIC DISORDER [None]
  - THINKING ABNORMAL [None]
  - VIOLENCE-RELATED SYMPTOM [None]
